FAERS Safety Report 13768109 (Version 3)
Quarter: 2018Q1

REPORT INFORMATION
  Report Type: Spontaneous
  Country: FR (occurrence: FR)
  Receive Date: 20170719
  Receipt Date: 20180207
  Transmission Date: 20180508
  Serious: Yes (Life-Threatening, Hospitalization)
  Sender: FDA-Public Use
  Company Number: PHHY2017FR101386

PATIENT
  Age: 8 Year
  Sex: Male

DRUGS (2)
  1. CARBAMAZEPINE. [Suspect]
     Active Substance: CARBAMAZEPINE
     Indication: PARTIAL SEIZURES
  2. CARBAMAZEPINE. [Suspect]
     Active Substance: CARBAMAZEPINE
     Indication: PARTIAL SEIZURES
     Dosage: UNK
     Route: 065

REACTIONS (19)
  - Lymphopenia [Recovering/Resolving]
  - Hypocalcaemia [Unknown]
  - Diarrhoea [Unknown]
  - Agranulocytosis [Recovered/Resolved]
  - Rash maculo-papular [Recovering/Resolving]
  - Pyrexia [Unknown]
  - Mycoplasma infection [Unknown]
  - Colitis [Recovering/Resolving]
  - Drug reaction with eosinophilia and systemic symptoms [Recovered/Resolved]
  - Face oedema [Recovering/Resolving]
  - Interstitial lung disease [Recovering/Resolving]
  - Abdominal pain upper [Unknown]
  - Anaemia [Unknown]
  - Rales [Unknown]
  - Oedema peripheral [Recovering/Resolving]
  - Cheilitis [Recovering/Resolving]
  - Hyponatraemia [Unknown]
  - Cough [Recovered/Resolved]
  - Roseolovirus test positive [Unknown]
